FAERS Safety Report 5017519-5 (Version None)
Quarter: 2006Q2

REPORT INFORMATION
  Report Type: 
  Country: None (occurrence: None)
  Receive Date: 20060603
  Receipt Date: 20060519
  Transmission Date: 20061013
  Serious: Yes (Life-Threatening, Hospitalization)
  Sender: FDA-Public Use
  Company Number: AU-BOEHRINGER INGELHEIM PHARMACEUTICALS, INC.-2006-BP-06192AU

PATIENT
  Sex: Male
  Weight: 76 kg

DRUGS (2)
  1. MOBIC [Suspect]
     Route: 048
  2. INDOCID [Suspect]
     Route: 048

REACTIONS (3)
  - DUODENAL ULCER [None]
  - MELAENA [None]
  - SYNCOPE [None]
